FAERS Safety Report 14124614 (Version 2)
Quarter: 2017Q4

REPORT INFORMATION
  Report Type: Spontaneous
  Country: US (occurrence: US)
  Receive Date: 20171025
  Receipt Date: 20171103
  Transmission Date: 20180321
  Serious: No
  Sender: FDA-Public Use
  Company Number: US-ASTRAZENECA-2017SF06561

PATIENT
  Sex: Male

DRUGS (6)
  1. NITROFURANTOIN. [Concomitant]
     Active Substance: NITROFURANTOIN
     Indication: DEVICE RELATED INFECTION
     Route: 048
     Dates: start: 2012
  2. SYMBICORT [Suspect]
     Active Substance: BUDESONIDE\FORMOTEROL FUMARATE DIHYDRATE
     Indication: EMPHYSEMA
     Dosage: 80/4.5 MICROGRAMS, TWO PUFFS, TWO TIMES A DAY
     Route: 055
     Dates: start: 20120502
  3. SYMBICORT [Suspect]
     Active Substance: BUDESONIDE\FORMOTEROL FUMARATE DIHYDRATE
     Indication: EMPHYSEMA
     Dosage: 80/4.5 MICROGRAMS, TWO PUFFS, TWO TIMES A DAY
     Route: 055
     Dates: start: 2012
  4. OXYBUTYNIN. [Concomitant]
     Active Substance: OXYBUTYNIN CHLORIDE
     Indication: URINARY INCONTINENCE
     Route: 048
     Dates: start: 2013
  5. BACTRIM [Concomitant]
     Active Substance: SULFAMETHOXAZOLE\TRIMETHOPRIM
     Indication: URINARY TRACT INFECTION
     Dosage: 800/160, TWO TIMES A DAY
     Route: 048
     Dates: start: 20171006
  6. ALBUTEROL. [Concomitant]
     Active Substance: ALBUTEROL
     Indication: WHEEZING
     Dosage: 0.083 PERCENT NEBULIZER SOLUTION, 1 VIAL EVERY FOUR HOURS
     Route: 055
     Dates: start: 2012

REACTIONS (5)
  - Urinary tract infection [Unknown]
  - Device malfunction [Unknown]
  - Off label use [Unknown]
  - Product use issue [Unknown]
  - Circumstance or information capable of leading to medication error [Unknown]
